FAERS Safety Report 15946499 (Version 1)
Quarter: 2019Q1

REPORT INFORMATION
  Report Type: Spontaneous
  Country: FR (occurrence: FR)
  Receive Date: 20190211
  Receipt Date: 20190211
  Transmission Date: 20190417
  Serious: Yes (Hospitalization)
  Sender: FDA-Public Use
  Company Number: FR-MYLANLABS-2019M1011514

PATIENT
  Age: 80 Year
  Sex: Female

DRUGS (9)
  1. OMEPRAZOLE. [Suspect]
     Active Substance: OMEPRAZOLE
     Indication: PROPHYLAXIS AGAINST GASTROINTESTINAL ULCER
     Dosage: 20 MILLIGRAM, QD
     Route: 048
     Dates: start: 20180421, end: 20180426
  2. IZALGI 500 MG/25 MG, G?LULE [Suspect]
     Active Substance: ACETAMINOPHEN\OPIUM
     Indication: ANALGESIC INTERVENTION SUPPORTIVE THERAPY
     Dosage: UNK,NON PR?CIS?E,(CONCENTRATION 500 MG/25 MG)
     Route: 048
     Dates: start: 20180628, end: 201807
  3. PYOSTACINE [Suspect]
     Active Substance: PRISTINAMYCIN
     Indication: TOOTH ABSCESS
     Dosage: 2 GRAM, QD
     Route: 048
     Dates: start: 20180421, end: 20180426
  4. FUCIDINE                           /00065702/ [Suspect]
     Active Substance: FUSIDATE SODIUM
     Indication: SKIN INFECTION
     Dosage: 1000 MILLIGRAM, QD
     Route: 048
     Dates: start: 20180629
  5. DOLIPRANE [Suspect]
     Active Substance: ACETAMINOPHEN
     Indication: ANALGESIC INTERVENTION SUPPORTIVE THERAPY
     Dosage: UNK,NON PR?CIS?E
     Route: 048
     Dates: start: 20180628, end: 201807
  6. BILASKA [Suspect]
     Active Substance: BILASTINE
     Indication: RASH PRURITIC
     Dosage: 20 MILLIGRAM, QD
     Route: 048
     Dates: start: 20180615
  7. DOLITABS [Suspect]
     Active Substance: ACETAMINOPHEN
     Indication: ANALGESIC INTERVENTION SUPPORTIVE THERAPY
     Dosage: UNK,NON PR?CIS?E
     Route: 048
     Dates: start: 20180627, end: 20180627
  8. AERIUS (DESLORATADINE) [Suspect]
     Active Substance: DESLORATADINE
     Indication: RASH PRURITIC
     Dosage: 5 MILLIGRAM, QD
     Route: 048
     Dates: start: 20180529, end: 201806
  9. ARCOXIA [Suspect]
     Active Substance: ETORICOXIB
     Indication: OSTEOARTHRITIS
     Dosage: 60 MILLIGRAM, QD
     Route: 048
     Dates: start: 20180421, end: 20180426

REACTIONS (1)
  - Drug reaction with eosinophilia and systemic symptoms [Recovering/Resolving]

NARRATIVE: CASE EVENT DATE: 201805
